FAERS Safety Report 8832079 (Version 1)
Quarter: 2012Q4

REPORT INFORMATION
  Report Type: 
  Country: US (occurrence: US)
  Receive Date: 20121009
  Receipt Date: 20121009
  Transmission Date: 20130627
  Serious: Yes (Hospitalization)
  Sender: FDA-Public Use
  Company Number: US-ROXANE LABORATORIES, INC.-2012-RO-01984RO

PATIENT
  Age: 24 Year
  Sex: Female

DRUGS (1)
  1. QUETIAPINE FUMARATE [Suspect]

REACTIONS (2)
  - Mental status changes [Recovered/Resolved]
  - Overdose [Recovered/Resolved]
